FAERS Safety Report 4553419-2 (Version None)
Quarter: 2005Q1

REPORT INFORMATION
  Report Type: 
  Country: None (occurrence: None)
  Receive Date: 20050112
  Receipt Date: 20041224
  Transmission Date: 20050727
  Serious: Yes (Hospitalization)
  Sender: FDA-Public Use
  Company Number: EWC041242060

PATIENT
  Age: 27 Year
  Sex: Female

DRUGS (1)
  1. GEMCITABINE HYDROCHLORIDE-IV (GEMCITABINE) [Suspect]
     Indication: SARCOMA
     Dosage: 900 MG/M2 OTHER
     Route: 050
     Dates: start: 20041018, end: 20041201

REACTIONS (1)
  - INTESTINAL OBSTRUCTION [None]
